FAERS Safety Report 6745497-7 (Version None)
Quarter: 2010Q2

REPORT INFORMATION
  Report Type: 
  Country: None (occurrence: None)
  Receive Date: 20100528
  Receipt Date: 20100514
  Transmission Date: 20101027
  Serious: No
  Sender: FDA-Public Use
  Company Number: US-JNJFOC-20100506129

PATIENT
  Sex: Male
  Weight: 83.92 kg

DRUGS (2)
  1. FENTANYL CITRATE [Suspect]
     Indication: PAIN
     Route: 062
  2. FENTANYL CITRATE [Suspect]
     Route: 062

REACTIONS (9)
  - APPLICATION SITE IRRITATION [None]
  - DIZZINESS [None]
  - DRUG ADMINISTERED AT INAPPROPRIATE SITE [None]
  - DRUG EFFECT DECREASED [None]
  - DRUG EFFECT INCREASED [None]
  - FEELING ABNORMAL [None]
  - NAUSEA [None]
  - PAIN [None]
  - TREATMENT NONCOMPLIANCE [None]
